FAERS Safety Report 9050299 (Version 2)
Quarter: 2013Q1

REPORT INFORMATION
  Report Type: Report from Study
  Country: CA (occurrence: CA)
  Receive Date: 20130205
  Receipt Date: 20130211
  Transmission Date: 20140127
  Serious: Yes (Other)
  Sender: FDA-Public Use
  Company Number: PHHY2013CA010312

PATIENT
  Sex: Male

DRUGS (1)
  1. CLOZARIL [Suspect]
     Indication: SCHIZOPHRENIA
     Dosage: 25 MG
     Route: 048
     Dates: start: 2007, end: 20130114

REACTIONS (2)
  - Parkinson^s disease [Unknown]
  - Terminal state [Unknown]
